FAERS Safety Report 13164090 (Version 1)
Quarter: 2017Q1

REPORT INFORMATION
  Report Type: Report from Study
  Country: None (occurrence: US)
  Receive Date: 20170130
  Receipt Date: 20170130
  Transmission Date: 20170428
  Serious: Yes (Other)
  Sender: FDA-Public Use
  Company Number: US-ABBVIE-17K-163-1848138-00

PATIENT
  Sex: Female

DRUGS (2)
  1. HUMIRA [Suspect]
     Active Substance: ADALIMUMAB
     Route: 058
     Dates: start: 2016, end: 2016
  2. HUMIRA [Suspect]
     Active Substance: ADALIMUMAB
     Indication: PSORIASIS
     Route: 058
     Dates: end: 2016

REACTIONS (5)
  - Psoriatic arthropathy [Unknown]
  - Diverticulitis [Recovered/Resolved]
  - Psoriasis [Recovering/Resolving]
  - Diverticulitis [Unknown]
  - Acrochordon [Recovered/Resolved]

NARRATIVE: CASE EVENT DATE: 2016
